FAERS Safety Report 5709005-1 (Version None)
Quarter: 2008Q2

REPORT INFORMATION
  Report Type: 
  Country: None (occurrence: None)
  Receive Date: 20080416
  Receipt Date: 20080416
  Transmission Date: 20081010
  Serious: No
  Sender: FDA-Public Use
  Company Number: None

PATIENT
  Sex: Female
  Weight: 75.2971 kg

DRUGS (2)
  1. ADALAT [Suspect]
     Indication: HYPERTENSION
     Dosage: 60 MG BID
  2. NIFEDIPINE [Suspect]

REACTIONS (2)
  - NO THERAPEUTIC RESPONSE [None]
  - STOMACH DISCOMFORT [None]
